FAERS Safety Report 9660603 (Version 2)
Quarter: 2013Q4

REPORT INFORMATION
  Report Type: Spontaneous
  Country: JP (occurrence: JP)
  Receive Date: 20131031
  Receipt Date: 20131118
  Transmission Date: 20140711
  Serious: Yes (Other)
  Sender: FDA-Public Use
  Company Number: JP-UCBSA-101663

PATIENT
  Age: 14 Year
  Sex: Female

DRUGS (4)
  1. E KEPPRA [Suspect]
     Indication: JUVENILE MYOCLONIC EPILEPSY
     Route: 048
  2. CARBAMAZEPINE [Concomitant]
     Indication: CONVULSION
     Route: 048
  3. LAMOTRIGINE [Concomitant]
     Indication: CONVULSION
     Route: 048
  4. CLONAZEPAM [Concomitant]
     Indication: CONVULSION

REACTIONS (3)
  - Convulsion [Recovering/Resolving]
  - Tonic convulsion [Recovering/Resolving]
  - Insomnia [Recovering/Resolving]
